FAERS Safety Report 6689236-7 (Version None)
Quarter: 2010Q2

REPORT INFORMATION
  Report Type: 
  Country: None (occurrence: None)
  Receive Date: 20100409
  Receipt Date: 20091218
  Transmission Date: 20101027
  Serious: Yes (Hospitalization, Other)
  Sender: FDA-Public Use
  Company Number: US-JNJFOC-20090805659

PATIENT
  Age: 69 Year
  Sex: Male

DRUGS (30)
  1. DECITABINE LYOPHILIZED POWDER [Suspect]
     Indication: ACUTE MYELOID LEUKAEMIA
     Dosage: 20 MG/M2 1 IN 1 DAY, INTRAVENOUS
     Route: 042
     Dates: start: 20080703, end: 20080707
  2. DECITABINE LYOPHILIZED POWDER [Suspect]
     Indication: ACUTE MYELOID LEUKAEMIA
     Dosage: 20 MG/M2 1 IN 1 DAY, INTRAVENOUS
     Route: 042
     Dates: start: 20080804, end: 20080808
  3. DECITABINE LYOPHILIZED POWDER [Suspect]
     Indication: ACUTE MYELOID LEUKAEMIA
     Dosage: 20 MG/M2 1 IN 1 DAY, INTRAVENOUS
     Route: 042
     Dates: start: 20080904, end: 20080908
  4. DECITABINE LYOPHILIZED POWDER [Suspect]
     Indication: ACUTE MYELOID LEUKAEMIA
     Dosage: 20 MG/M2 1 IN 1 DAY, INTRAVENOUS
     Route: 042
     Dates: start: 20081008, end: 20081012
  5. VORINOSTAT CAPSULE [Suspect]
     Indication: ACUTE MYELOID LEUKAEMIA
     Dosage: 400 MG, 1 IN 1 DAY ORAL
     Route: 048
     Dates: start: 20080703, end: 20080716
  6. VORINOSTAT CAPSULE [Suspect]
     Indication: ACUTE MYELOID LEUKAEMIA
     Dosage: 400 MG, 1 IN 1 DAY ORAL
     Route: 048
     Dates: start: 20080804, end: 20080817
  7. VORINOSTAT CAPSULE [Suspect]
     Indication: ACUTE MYELOID LEUKAEMIA
     Dosage: 400 MG, 1 IN 1 DAY ORAL
     Route: 048
     Dates: start: 20080904, end: 20080917
  8. VORINOSTAT CAPSULE [Suspect]
     Indication: ACUTE MYELOID LEUKAEMIA
     Dosage: 400 MG, 1 IN 1 DAY ORAL
     Route: 048
     Dates: start: 20081008, end: 20081021
  9. LEVOFLOXACIN [Suspect]
     Indication: INFECTION PROPHYLAXIS
     Dosage: 750 MG, 1 IN 1 DAY
     Dates: start: 20080715, end: 20080731
  10. ACYCLOVIR [Suspect]
     Indication: INFECTION PROPHYLAXIS
     Dates: start: 20080710
  11. FLUCONAZOLE UNSPECIFIED [Suspect]
     Indication: INFECTION PROPHYLAXIS
     Dates: start: 20080715
  12. ACETAMINOPHEN/OXYCODONE (OXYCOCET) [Concomitant]
  13. ACETAMINOPHEN [Concomitant]
  14. ACETAINOPHEN/HYDROCODONE BITARTRATE (VICODIN) [Concomitant]
  15. ALLOPURINOL [Concomitant]
  16. AMLODIPINE BESYLATE [Concomitant]
  17. BUMETANIDE [Concomitant]
  18. CALCIUM [Concomitant]
  19. DOCUSATE SODIUM [Concomitant]
  20. FAMOTIDINE [Concomitant]
  21. FUROSEMIDE [Concomitant]
  22. HYDRALAZINE HCL [Concomitant]
  23. LORAZEPAM [Concomitant]
  24. MEPERIDINE HCL [Concomitant]
  25. METLOAZONE [Concomitant]
  26. ONDANSETRON HYDROCHLORIDE [Concomitant]
  27. POTASSIUM CHLORIDE [Concomitant]
  28. SENNA (SENNA ALEXANDRINA) [Concomitant]
  29. SODIUM ACETATE [Concomitant]
  30. SPIRONOLACTONE [Concomitant]

REACTIONS (27)
  - BACK PAIN [None]
  - BONE PAIN [None]
  - CLOSTRIDIAL INFECTION [None]
  - CONFUSIONAL STATE [None]
  - COUGH [None]
  - DEHYDRATION [None]
  - DIARRHOEA [None]
  - DISORIENTATION [None]
  - DIZZINESS [None]
  - DRUG INEFFECTIVE [None]
  - DRUG INTOLERANCE [None]
  - FEBRILE NEUTROPENIA [None]
  - FLUID OVERLOAD [None]
  - FUNGAL INFECTION [None]
  - HYPONATRAEMIA [None]
  - LUNG INFILTRATION [None]
  - MALNUTRITION [None]
  - MENTAL STATUS CHANGES [None]
  - MUSCLE SPASMS [None]
  - NAUSEA [None]
  - NERVOUS SYSTEM DISORDER [None]
  - OSTEOSCLEROSIS [None]
  - STAPHYLOCOCCAL BACTERAEMIA [None]
  - THIRST [None]
  - VISION BLURRED [None]
  - VOMITING [None]
  - WEIGHT INCREASED [None]
